FAERS Safety Report 9771860 (Version 2)
Quarter: 2013Q4

REPORT INFORMATION
  Report Type: Spontaneous
  Country: JP (occurrence: JP)
  Receive Date: 20131219
  Receipt Date: 20131219
  Transmission Date: 20140711
  Serious: Yes (Hospitalization)
  Sender: FDA-Public Use
  Company Number: PHHY2013JP140614

PATIENT
  Sex: Male

DRUGS (2)
  1. STARSIS [Suspect]
     Indication: DIABETES MELLITUS
     Dosage: UNK UKN, UNK
     Route: 048
  2. EQUA [Suspect]
     Dosage: UNK UKN, UNK
     Route: 048

REACTIONS (1)
  - Blood potassium increased [Recovered/Resolved]
